FAERS Safety Report 5777041-5 (Version None)
Quarter: 2008Q2

REPORT INFORMATION
  Report Type: 
  Country: None (occurrence: None)
  Receive Date: 20080618
  Receipt Date: 20080414
  Transmission Date: 20081010
  Serious: No
  Sender: FDA-Public Use
  Company Number: US-ASTRAZENECA-2008UW07661

PATIENT
  Age: 70 Year
  Sex: Female

DRUGS (3)
  1. SYMBICORT [Suspect]
     Indication: ASTHMA
     Dosage: 160/4.5 UG
     Route: 055
     Dates: start: 20080201
  2. NEXIUM [Concomitant]
  3. VITAMIN [Concomitant]

REACTIONS (4)
  - AGEUSIA [None]
  - DYSPHONIA [None]
  - NAUSEA [None]
  - TONGUE DISORDER [None]
